FAERS Safety Report 9398989 (Version 1)
Quarter: 2013Q3

REPORT INFORMATION
  Report Type: Spontaneous
  Country: AU (occurrence: AU)
  Receive Date: 20130714
  Receipt Date: 20130714
  Transmission Date: 20140515
  Serious: Yes (Death, Other)
  Sender: FDA-Public Use
  Company Number: AU-009507513-1307AUS004888

PATIENT
  Age: 80 Year
  Sex: Female

DRUGS (9)
  1. FOSAMAX [Suspect]
     Route: 048
  2. AVAPRO [Suspect]
  3. CALCIUM (UNSPECIFIED) [Suspect]
  4. DIGOXIN [Suspect]
  5. LIPITOR [Suspect]
  6. METFORMIN HYDROCHLORIDE [Suspect]
  7. OXYCONTIN [Suspect]
  8. PRADAXA [Suspect]
     Indication: CEREBROVASCULAR ACCIDENT PROPHYLAXIS
     Dosage: 110 MG, BID
     Dates: start: 20110816
  9. OMEGA-3 MARINE TRIGLYCERIDES [Concomitant]

REACTIONS (2)
  - Myocardial infarction [Fatal]
  - Pneumonia [Fatal]
